FAERS Safety Report 10334452 (Version 2)
Quarter: 2014Q3

REPORT INFORMATION
  Report Type: Spontaneous
  Country: CA (occurrence: CA)
  Receive Date: 20140723
  Receipt Date: 20140801
  Transmission Date: 20150326
  Serious: Yes (Life-Threatening, Hospitalization, Other)
  Sender: FDA-Public Use
  Company Number: CA-ASTRAZENECA-2014SE52243

PATIENT
  Age: 62 Year
  Sex: Male

DRUGS (3)
  1. CRESTOR [Suspect]
     Active Substance: ROSUVASTATIN CALCIUM
     Dosage: UNKNOWN DOSE, DAILY
     Route: 048
     Dates: start: 2011
  2. PLENDIL [Suspect]
     Active Substance: FELODIPINE
     Dosage: FELODIPINE
     Route: 065
     Dates: start: 2007
  3. PLENDIL [Suspect]
     Active Substance: FELODIPINE
     Route: 048
     Dates: start: 2010

REACTIONS (2)
  - Cerebrovascular accident [Unknown]
  - Myocardial infarction [Unknown]

NARRATIVE: CASE EVENT DATE: 20140511
